FAERS Safety Report 21466636 (Version 1)
Quarter: 2022Q4

REPORT INFORMATION
  Report Type: Spontaneous
  Country: DE (occurrence: DE)
  Receive Date: 20221017
  Receipt Date: 20221017
  Transmission Date: 20230112
  Serious: Yes (Hospitalization)
  Sender: FDA-Public Use
  Company Number: DE-ADRED-04364-01

PATIENT

DRUGS (10)
  1. DICLOFENAC [Suspect]
     Active Substance: DICLOFENAC
     Indication: Product used for unknown indication
     Dosage: 69.82 MG (IF REQUIRED, SUSTAINED-RELEASE CAPSULE)
     Route: 048
  2. CLOPIDOGREL [Suspect]
     Active Substance: CLOPIDOGREL BISULFATE
     Indication: Product used for unknown indication
     Dosage: 75 MG, QD ( 0-1-0-0)
     Route: 048
  3. METHOTREXATE [Suspect]
     Active Substance: METHOTREXATE
     Indication: Product used for unknown indication
     Dosage: UNK, QD (15 MG/WT, 1-0-0-0)
     Route: 065
  4. PREDNISOLONE [Suspect]
     Active Substance: PREDNISOLONE
     Indication: Product used for unknown indication
     Dosage: 5 MG, QD (1-0-0-0)
     Route: 048
  5. FOLIC ACID [Concomitant]
     Active Substance: FOLIC ACID
     Indication: Product used for unknown indication
     Dosage: UNK, QD (15 MG/WT, 1-0-0-0)
     Route: 065
  6. PANTOPRAZOLE [Concomitant]
     Active Substance: PANTOPRAZOLE
     Indication: Product used for unknown indication
     Dosage: UNK, QD (DOSE: 40 MG/2 DAYS, 1-0-0-0)
     Route: 048
  7. PANTOPRAZOLE [Concomitant]
     Active Substance: PANTOPRAZOLE
     Dosage: UNK (40 MG/2 DAYS, 1-0-0-0, TABLETS)
     Route: 048
  8. METAMIZOLE [Concomitant]
     Active Substance: METAMIZOLE
     Indication: Product used for unknown indication
     Dosage: UNK (30 GTT, IF REQUIRED)
     Route: 065
  9. VIT D2 (ERGOCALCIFEROL) [Concomitant]
     Indication: Product used for unknown indication
     Dosage: 1000 IU, QD (1-0-0-0)
     Route: 048
  10. PANCREATIN [Concomitant]
     Active Substance: PANCRELIPASE
     Indication: Product used for unknown indication
     Dosage: 400 MG (1-1-2-0)
     Route: 048

REACTIONS (4)
  - Anaemia [Unknown]
  - General physical health deterioration [Unknown]
  - Pallor [Unknown]
  - Arthralgia [Unknown]
